FAERS Safety Report 9272604 (Version 1)
Quarter: 2013Q2

REPORT INFORMATION
  Report Type: Spontaneous
  Country: US (occurrence: US)
  Receive Date: 20130506
  Receipt Date: 20130506
  Transmission Date: 20140414
  Serious: No
  Sender: FDA-Public Use
  Company Number: US-ASTRAZENECA-2013SE01011

PATIENT
  Sex: Female

DRUGS (3)
  1. PRILOSEC OTC [Suspect]
     Indication: GASTRIC ULCER
     Route: 048
     Dates: start: 20121229, end: 20121231
  2. ANTIBIOTICS [Concomitant]
     Indication: GASTRIC ULCER
     Dosage: UNKNOWN
  3. METFORMIN [Concomitant]
     Indication: DIABETES MELLITUS
     Dosage: UNKNOWN

REACTIONS (2)
  - Chest pain [Recovered/Resolved]
  - Aphonia [Recovered/Resolved]
